FAERS Safety Report 7833988-7 (Version None)
Quarter: 2011Q4

REPORT INFORMATION
  Report Type: 
  Country: None (occurrence: None)
  Receive Date: 20111024
  Receipt Date: 20111019
  Transmission Date: 20120403
  Serious: Yes (Other)
  Sender: FDA-Public Use
  Company Number: JP-SHIRE-CQT4-2011-00009

PATIENT
  Sex: Female
  Weight: 58.7 kg

DRUGS (25)
  1. RINDERON                           /00008501/ [Concomitant]
     Indication: CATARACT
     Dosage: UNK UNK, UNKNOWN
     Dates: start: 20110608, end: 20110822
  2. ASVERIN                            /00465502/ [Concomitant]
     Indication: BRONCHITIS
     Dosage: UNK UNK, UNKNOWN
     Route: 065
     Dates: start: 20111005
  3. CYMERIN [Concomitant]
     Indication: ESSENTIAL THROMBOCYTHAEMIA
     Dosage: UNK UNK, UNKNOWN
     Route: 065
     Dates: start: 20111005, end: 20111005
  4. ANAGRELIDE HCL [Suspect]
     Indication: ESSENTIAL THROMBOCYTHAEMIA
     Dosage: 1 MG, 3X/DAY:TID
     Route: 048
     Dates: start: 20110908, end: 20110928
  5. ANAGRELIDE HCL [Suspect]
     Dosage: 1.5 MG, DAILY
     Route: 048
     Dates: start: 20110817, end: 20110824
  6. ANAGRELIDE HCL [Suspect]
     Dosage: 2.0 MG, DAILY
     Route: 048
     Dates: start: 20110825, end: 20110831
  7. BRONUCK [Concomitant]
     Indication: CATARACT
     Dosage: UNK UNK, UNKNOWN
     Route: 065
     Dates: start: 20110608
  8. DEXALTIN ORAL OINTMENT [Concomitant]
     Indication: APHTHOUS STOMATITIS
     Dosage: UNK UNK, UNKNOWN
     Route: 065
     Dates: start: 20110914, end: 20110917
  9. LEVOFLOXACIN [Concomitant]
     Indication: PHARYNGITIS
     Dosage: UNK UNK, UNKNOWN
     Route: 065
     Dates: start: 20110915, end: 20110919
  10. ASVERIN                            /00465502/ [Concomitant]
     Indication: PHARYNGITIS
     Dosage: UNK UNK, UNKNOWN
     Route: 065
     Dates: start: 20110921, end: 20111003
  11. ANAGRELIDE HCL [Suspect]
     Dosage: 1.0 MG, DAILY
     Route: 048
     Dates: start: 20110810, end: 20110816
  12. ASPIRIN [Concomitant]
     Indication: ESSENTIAL THROMBOCYTHAEMIA
     Dosage: UNK UNK, UNKNOWN
     Route: 065
     Dates: start: 20100801
  13. ISOTONIN SODIUM CHLORIDE SOLUTION [Concomitant]
     Dosage: UNK UNK, UNKNOWN
     Route: 065
     Dates: start: 20111005, end: 20111005
  14. PL GRAN. [Concomitant]
     Dosage: UNK
     Dates: start: 20110928, end: 20111003
  15. BISOLVON [Concomitant]
     Indication: PHARYNGITIS
     Dosage: UNK UNK, UNKNOWN
     Dates: start: 20110914, end: 20110919
  16. BISOLVON [Concomitant]
     Indication: BRONCHITIS
     Dosage: UNK UNK, UNKNOWN
     Route: 065
     Dates: start: 20110921, end: 20111003
  17. GARENOXACIN MESYLATE [Concomitant]
     Indication: PHARYNGITIS
     Dosage: UNK UNK, UNKNOWN
     Route: 065
     Dates: start: 20110921, end: 20110927
  18. CLARITHROMYCIN [Concomitant]
     Indication: BRONCHITIS
     Dosage: UNK UNK, UNKNOWN
     Route: 065
     Dates: start: 20111005
  19. GATIFLOXACIN [Concomitant]
     Indication: CATARACT
     Dosage: UNK UNK, UNKNOWN
     Route: 065
     Dates: start: 20110517, end: 20110822
  20. ISOTONIN SODIUM CHLORIDE SOLUTION [Concomitant]
     Indication: FLUID REPLACEMENT
     Dosage: UNK UNK, UNKNOWN
     Route: 065
     Dates: start: 20110914, end: 20110914
  21. RED CELLS MAP [Concomitant]
     Indication: ANAEMIA
     Dosage: UNK UNK, UNKNOWN
     Route: 065
     Dates: start: 20110914, end: 20110914
  22. PL GRAN. [Concomitant]
     Indication: PHARYNGITIS
     Dosage: UNK UNK, UNKNOWN
     Route: 065
     Dates: start: 20110914, end: 20110919
  23. BISOLVON [Concomitant]
     Dosage: UNK UNK, UNKNOWN
     Route: 065
     Dates: start: 20111005
  24. HOKUNALIN                          /00654901/ [Concomitant]
     Indication: BRONCHITIS
     Dosage: UNK UNK, UNKNOWN
     Route: 065
     Dates: start: 20111005
  25. ANAGRELIDE HCL [Suspect]
     Dosage: 2.5 MG, DAILY
     Route: 048
     Dates: start: 20110901, end: 20110907

REACTIONS (1)
  - CYTOGENETIC ABNORMALITY [None]
